FAERS Safety Report 16061798 (Version 1)
Quarter: 2019Q1

REPORT INFORMATION
  Report Type: Spontaneous
  Country: US (occurrence: US)
  Receive Date: 20190312
  Receipt Date: 20190312
  Transmission Date: 20190418
  Serious: No
  Sender: FDA-Public Use
  Company Number: US-PFIZER INC-2018452229

PATIENT
  Age: 60 Year
  Sex: Male

DRUGS (6)
  1. VIAGRA [Suspect]
     Active Substance: SILDENAFIL CITRATE
     Dosage: 100 MG (ONE ON DAY AND THEN ONE IN A COUPLE DAYS)
  2. VIAGRA [Suspect]
     Active Substance: SILDENAFIL CITRATE
     Dosage: 100 MG (ONE ON DAY AND THEN ONE IN A COUPLE DAYS)
  3. VIAGRA [Suspect]
     Active Substance: SILDENAFIL CITRATE
     Dosage: 100 MG (ONE ON DAY AND THEN ONE IN A COUPLE DAYS)
  4. VIAGRA [Suspect]
     Active Substance: SILDENAFIL CITRATE
     Dosage: 100 MG (ONE ON DAY AND THEN ONE IN A COUPLE DAYS)
  5. VIAGRA [Suspect]
     Active Substance: SILDENAFIL CITRATE
     Dosage: 100 MG (ONE ON DAY AND THEN ONE IN A COUPLE DAYS)
  6. VIAGRA [Suspect]
     Active Substance: SILDENAFIL CITRATE
     Dosage: 100 MG (ONE ON DAY AND THEN ONE IN A COUPLE DAYS)

REACTIONS (3)
  - Circumstance or information capable of leading to medication error [Unknown]
  - Product expiration date issue [Unknown]
  - Drug ineffective [Unknown]
